FAERS Safety Report 5129681-4 (Version None)
Quarter: 2006Q4

REPORT INFORMATION
  Report Type: 
  Country: None (occurrence: None)
  Receive Date: 20061018
  Receipt Date: 20060510
  Transmission Date: 20070319
  Serious: Yes (Disabling, Other)
  Sender: FDA-Public Use
  Company Number: AU-GLAXOSMITHKLINE-B0423966A

PATIENT
  Age: 74 Year
  Sex: Male
  Weight: 84 kg

DRUGS (15)
  1. AVANDIA [Suspect]
     Dosage: 8MG PER DAY
     Route: 065
     Dates: start: 20051219, end: 20060130
  2. METFORMIN HCL [Concomitant]
     Dosage: 500MG THREE TIMES PER DAY
     Route: 065
     Dates: start: 20051116
  3. GLIMEPIRIDE [Concomitant]
     Dosage: 4MG PER DAY
     Route: 065
     Dates: start: 20060805
  4. NATRILIX SR [Concomitant]
     Dosage: 1.5MG PER DAY
     Route: 065
     Dates: start: 20060408
  5. NORVASC [Concomitant]
     Dosage: 10MG PER DAY
     Route: 065
     Dates: start: 20060512
  6. RANITIDINE [Concomitant]
     Dosage: 150MG TWICE PER DAY
     Route: 065
     Dates: start: 20050916
  7. TEMAZE [Concomitant]
     Dosage: 10MG PER DAY
     Route: 065
     Dates: start: 20051121
  8. FML [Concomitant]
     Dosage: 1DROP THREE TIMES PER DAY
     Route: 065
     Dates: start: 20060610
  9. LIPITOR [Concomitant]
     Dosage: 20MG PER DAY
     Route: 065
     Dates: start: 20050916
  10. AVAPRO [Concomitant]
     Dosage: 300MG PER DAY
     Route: 048
     Dates: start: 20050906
  11. POLYVINYL ALCOHOL [Concomitant]
     Route: 047
     Dates: start: 20060304
  12. GOPTEN [Concomitant]
     Dosage: 2MG PER DAY
     Route: 065
     Dates: start: 20060906
  13. METOPROLOL TARTRATE [Concomitant]
     Dosage: 50MG TWICE PER DAY
     Route: 065
     Dates: start: 20060202
  14. NITROGLYCERIN [Concomitant]
     Dosage: 600MCG AS REQUIRED
     Route: 060
     Dates: start: 20060727
  15. TRITACE [Concomitant]
     Dosage: 1.25MG PER DAY
     Route: 065
     Dates: start: 20060720

REACTIONS (3)
  - BLINDNESS [None]
  - MACULAR OEDEMA [None]
  - VISION BLURRED [None]
